FAERS Safety Report 7705840-9 (Version None)
Quarter: 2011Q3

REPORT INFORMATION
  Report Type: 
  Country: None (occurrence: None)
  Receive Date: 20110824
  Receipt Date: 20110822
  Transmission Date: 20111222
  Serious: Yes (Death)
  Sender: FDA-Public Use
  Company Number: JP-SANOFI-AVENTIS-2011SA051586

PATIENT
  Age: 63 Year
  Sex: Male

DRUGS (20)
  1. NAUZELIN [Concomitant]
     Dates: start: 20110428, end: 20110504
  2. FENTANYL [Concomitant]
     Dates: start: 20110428, end: 20110701
  3. AVASTIN [Suspect]
     Indication: COLON CANCER METASTATIC
     Dosage: FREQUENCY : 1 PER DAY; 2ND CYCLE OF THE COMPLETE CLINICAL COURSE.
     Route: 041
     Dates: start: 20110610, end: 20110610
  4. EMEND [Concomitant]
     Dates: start: 20110427, end: 20110723
  5. CHLOR-TRIMETON [Concomitant]
     Dates: start: 20110722, end: 20110722
  6. OXALIPLATIN [Suspect]
     Indication: COLON CANCER METASTATIC
     Dosage: CYCLE 1-4
     Route: 041
     Dates: start: 20110427
  7. CANDESARTAN CILEXETIL [Concomitant]
     Dates: start: 20110520, end: 20110701
  8. OXALIPLATIN [Suspect]
     Route: 041
     Dates: start: 20110722, end: 20110722
  9. XELODA [Suspect]
     Indication: COLON CANCER METASTATIC
     Dosage: FREQUENCY: TWO TIMES PER THREE WEEKCYCLE- 1-5
     Route: 048
     Dates: start: 20110427, end: 20110701
  10. AMOBAN [Concomitant]
  11. MAGNESIUM OXIDE [Concomitant]
     Dates: end: 20110519
  12. VITAMIN A [Concomitant]
     Dates: start: 20110426
  13. FAMOTIDINE [Concomitant]
     Dates: start: 20110427, end: 20110701
  14. KYTRIL [Concomitant]
     Dates: start: 20110428, end: 20110428
  15. KYTRIL [Concomitant]
     Dates: start: 20110722, end: 20110722
  16. DEXAMETHASONE [Concomitant]
     Dates: start: 20110722, end: 20110722
  17. PRAVASTATIN SODIUM [Concomitant]
     Dosage: ENDA DATE REPORTED: JULY 2011
     Dates: start: 20110701
  18. HIRUDOID [Concomitant]
     Dates: start: 20110427, end: 20110701
  19. WHITE SOFT PARAFFIN [Concomitant]
     Dates: start: 20110426
  20. DEXAMETHASONE [Concomitant]
     Dates: start: 20110428, end: 20110723

REACTIONS (5)
  - DEATH [None]
  - PALMAR-PLANTAR ERYTHRODYSAESTHESIA SYNDROME [None]
  - HAEMATOTOXICITY [None]
  - DISEASE PROGRESSION [None]
  - HYPERTENSION [None]
